FAERS Safety Report 24618456 (Version 1)
Quarter: 2024Q4

REPORT INFORMATION
  Report Type: Spontaneous
  Country: US (occurrence: US)
  Receive Date: 20241114
  Receipt Date: 20241114
  Transmission Date: 20250115
  Serious: No
  Sender: EMD SERONO INC
  Company Number: US-Merck Healthcare KGaA-2024059127

PATIENT
  Age: 45 Year
  Sex: Female

DRUGS (1)
  1. MAVENCLAD [Suspect]
     Active Substance: CLADRIBINE
     Indication: Multiple sclerosis
     Dosage: THERAPY: 2 TABLETS DAILY FOR 3 DAYS AND ONE TABLET FOR 2 DAYS
     Route: 048

REACTIONS (3)
  - Headache [Unknown]
  - Back pain [Unknown]
  - Musculoskeletal stiffness [Unknown]
